FAERS Safety Report 8284625-1 (Version None)
Quarter: 2012Q2

REPORT INFORMATION
  Report Type: 
  Country: None (occurrence: None)
  Receive Date: 20120413
  Receipt Date: 20111229
  Transmission Date: 20120825
  Serious: No
  Sender: FDA-Public Use
  Company Number: US-ASTRAZENECA-2011SE02489

PATIENT
  Age: 48 Year
  Sex: Female
  Weight: 51.7 kg

DRUGS (10)
  1. SEROQUEL [Suspect]
     Indication: BIPOLAR DISORDER
     Route: 048
     Dates: start: 20110101
  2. SEROQUEL [Suspect]
     Route: 048
  3. SYNTHROID [Concomitant]
  4. PHENERGAN HCL [Concomitant]
  5. BENTYL [Concomitant]
  6. SEROQUEL [Suspect]
     Indication: SLEEP DISORDER
     Route: 048
     Dates: start: 20110101
  7. ALBUTEROL [Concomitant]
  8. SEROQUEL [Suspect]
     Route: 048
  9. LAMICTAL [Concomitant]
  10. NEXIUM [Suspect]
     Route: 048

REACTIONS (11)
  - MUSCLE TWITCHING [None]
  - ADVERSE DRUG REACTION [None]
  - DRUG WITHDRAWAL SYNDROME [None]
  - INSOMNIA [None]
  - VOMITING [None]
  - PAIN [None]
  - OESOPHAGITIS [None]
  - MALNUTRITION [None]
  - OFF LABEL USE [None]
  - ABDOMINAL PAIN UPPER [None]
  - DRUG DOSE OMISSION [None]
